FAERS Safety Report 7941922-4 (Version None)
Quarter: 2011Q4

REPORT INFORMATION
  Report Type: 
  Country: None (occurrence: None)
  Receive Date: 20111114
  Receipt Date: 20110713
  Transmission Date: 20120403
  Serious: Yes (Other)
  Sender: FDA-Public Use
  Company Number: 2011028956

PATIENT
  Age: 11 Year
  Sex: Male
  Weight: 27.2158 kg

DRUGS (1)
  1. HIZENTRA [Suspect]
     Indication: IMMUNODEFICIENCY COMMON VARIABLE
     Dosage: (4G 1X/WEEK, INFUSED IN 2 SITES OVER 2-3 HOURS SUBCUTANEOUS)
     Route: 058
     Dates: start: 20110517

REACTIONS (4)
  - FATIGUE [None]
  - INFUSION SITE ERYTHEMA [None]
  - DRUG INEFFECTIVE [None]
  - INFUSION SITE OEDEMA [None]
